FAERS Safety Report 5118709-3 (Version None)
Quarter: 2006Q4

REPORT INFORMATION
  Report Type: 
  Country: None (occurrence: None)
  Receive Date: 20061002
  Receipt Date: 20060920
  Transmission Date: 20070319
  Serious: Yes (Disabling)
  Sender: FDA-Public Use
  Company Number: US-KINGPHARMUSA00001-K200601208

PATIENT
  Age: 57 Year
  Sex: Male

DRUGS (3)
  1. ALTACE [Suspect]
     Indication: MYOCARDIAL INFARCTION
     Dosage: 2.5 MG, QD
     Route: 048
     Dates: start: 20010301, end: 20060901
  2. ASPIRIN [Concomitant]
     Indication: ANTICOAGULANT THERAPY
     Dosage: 75 MG, UNK
     Route: 048
     Dates: start: 20010301
  3. ATORVASTATIN CALCIUM [Concomitant]
     Indication: BLOOD CHOLESTEROL
     Dosage: 40 MG, UNK
     Route: 048
     Dates: start: 20010301

REACTIONS (6)
  - COUGH [None]
  - DYSPNOEA [None]
  - SEASONAL ALLERGY [None]
  - SINUSITIS [None]
  - SLEEP DISORDER [None]
  - WHEEZING [None]
